FAERS Safety Report 20431705 (Version 1)
Quarter: 2022Q1

REPORT INFORMATION
  Report Type: Spontaneous
  Country: US (occurrence: None)
  Receive Date: 20220203
  Receipt Date: 20220203
  Transmission Date: 20220423
  Serious: No
  Sender: FDA-Public Use
  Company Number: None

PATIENT
  Age: 55 Year
  Sex: Male

DRUGS (1)
  1. SUNITINIB [Suspect]
     Active Substance: SUNITINIB
     Indication: Product used for unknown indication
     Dosage: FREQUENCY : DAILY;?
     Route: 048
     Dates: start: 202103, end: 202201

REACTIONS (4)
  - Malignant neoplasm progression [None]
  - Drug tolerance decreased [None]
  - Intentional underdose [None]
  - Adverse drug reaction [None]

NARRATIVE: CASE EVENT DATE: 20220110
